FAERS Safety Report 4803999-4 (Version None)
Quarter: 2005Q3

REPORT INFORMATION
  Report Type: 
  Country: None (occurrence: None)
  Receive Date: 20050920
  Receipt Date: 20050727
  Transmission Date: 20060218
  Serious: No
  Sender: FDA-Public Use
  Company Number: US-YAMANOUCHI-YPA20050397

PATIENT
  Age: 53 Year
  Sex: Female

DRUGS (2)
  1. VESICARE [Suspect]
     Indication: CYSTITIS INTERSTITIAL
     Dates: start: 20050501
  2. FOSAMAX [Concomitant]

REACTIONS (4)
  - CONSTIPATION [None]
  - LIBIDO DECREASED [None]
  - SOMNOLENCE [None]
  - VISION BLURRED [None]
